FAERS Safety Report 8597304-8 (Version None)
Quarter: 2012Q3

REPORT INFORMATION
  Report Type: 
  Country: None (occurrence: None)
  Receive Date: 20120816
  Receipt Date: 20120815
  Transmission Date: 20120928
  Serious: No
  Sender: FDA-Public Use
  Company Number: US-PFIZER INC-2012199911

PATIENT
  Sex: Male

DRUGS (2)
  1. GEODON [Suspect]
     Dosage: 40 MG, UNK
  2. GEODON [Suspect]
     Dosage: 60 MG, UNK

REACTIONS (1)
  - DYSPHAGIA [None]
